FAERS Safety Report 8387245-3 (Version None)
Quarter: 2012Q2

REPORT INFORMATION
  Report Type: 
  Country: None (occurrence: None)
  Receive Date: 20120525
  Receipt Date: 20120522
  Transmission Date: 20120825
  Serious: Yes (Hospitalization, Other)
  Sender: FDA-Public Use
  Company Number: JP-ABBOTT-11P-087-0730523-00

PATIENT
  Sex: Female
  Weight: 38 kg

DRUGS (7)
  1. ADALIMUMAB [Suspect]
     Indication: RHEUMATOID ARTHRITIS
     Route: 058
     Dates: start: 20101018, end: 20110404
  2. METHOTREXATE [Suspect]
     Indication: RHEUMATOID ARTHRITIS
     Route: 048
  3. ISONIAZID [Concomitant]
     Indication: ADVERSE EVENT
  4. ISONIAZID [Concomitant]
     Indication: PROPHYLAXIS
  5. TACROLIMUS [Concomitant]
     Indication: RHEUMATOID ARTHRITIS
     Dosage: 1MG DAILY DOSE
     Route: 048
  6. PYRIDOXAL PHOSPHATE HYDRATE [Concomitant]
     Indication: PROPHYLAXIS
  7. PYRIDOXAL PHOSPHATE HYDRATE [Concomitant]
     Indication: ADVERSE EVENT

REACTIONS (11)
  - PYREXIA [None]
  - ADVERSE DRUG REACTION [None]
  - LYMPHOMA [None]
  - ARTHRALGIA [None]
  - PYELONEPHRITIS [None]
  - PANCYTOPENIA [None]
  - SPLENOMEGALY [None]
  - MALAISE [None]
  - LYMPHADENOPATHY [None]
  - EPSTEIN-BARR VIRUS INFECTION [None]
  - DECREASED APPETITE [None]
